FAERS Safety Report 21446159 (Version 3)
Quarter: 2022Q4

REPORT INFORMATION
  Report Type: Report from Study
  Country: GB (occurrence: GB)
  Receive Date: 20221012
  Receipt Date: 20221110
  Transmission Date: 20230113
  Serious: Yes (Hospitalization, Other)
  Sender: FDA-Public Use
  Company Number: GB-GLAXOSMITHKLINE-GB2022EME141111

PATIENT

DRUGS (2)
  1. NIRAPARIB [Suspect]
     Active Substance: NIRAPARIB
     Indication: Neoplasm malignant
     Dosage: 300 MG
     Dates: start: 20220905, end: 20220922
  2. NIRAPARIB [Suspect]
     Active Substance: NIRAPARIB
     Dosage: 300 MG, QD

REACTIONS (4)
  - Platelet count decreased [Recovered/Resolved]
  - Haemorrhage [Recovered/Resolved]
  - Oral disorder [Recovered/Resolved]
  - Throat lesion [Recovered/Resolved]
